FAERS Safety Report 23683850 (Version 1)
Quarter: 2024Q1

REPORT INFORMATION
  Report Type: Spontaneous
  Country: FR (occurrence: FR)
  Receive Date: 20240328
  Receipt Date: 20240328
  Transmission Date: 20240410
  Serious: Yes (Other)
  Sender: FDA-Public Use
  Company Number: FR-009507513-2403FRA004232

PATIENT
  Sex: Female

DRUGS (4)
  1. PACLITAXEL [Suspect]
     Active Substance: PACLITAXEL
     Indication: Triple negative breast cancer
     Dosage: UNK?FORM OF ADMIN: INJECTION
     Dates: start: 202206
  2. CARBOPLATIN [Suspect]
     Active Substance: CARBOPLATIN
     Indication: Triple negative breast cancer
     Dosage: UNK?FORM: INJECTION
     Dates: start: 202206
  3. KEYTRUDA [Suspect]
     Active Substance: PEMBROLIZUMAB
     Indication: Triple negative breast cancer
     Dosage: 200 MILLIGRAM, Q3W, 4 INJECTIONS AS NEOADJUVANT TREATMENT?FORM: SOLUTION FOR INJECTION
     Dates: start: 20220627
  4. KEYTRUDA [Suspect]
     Active Substance: PEMBROLIZUMAB
     Dosage: 200 MILLIGRAM, Q3W, 5 INJECTIONS AS ADJUVANT TREATMENT?FORM: SOLUTION FOR INJECTION

REACTIONS (2)
  - Rectosigmoid cancer [Unknown]
  - Colonic abscess [Unknown]
